FAERS Safety Report 14382896 (Version 2)
Quarter: 2018Q1

REPORT INFORMATION
  Report Type: Spontaneous
  Country: CA (occurrence: CA)
  Receive Date: 20180114
  Receipt Date: 20180203
  Transmission Date: 20180509
  Serious: Yes (Hospitalization, Other)
  Sender: FDA-Public Use
  Company Number: CA-ABBVIE-15K-028-1473055-00

PATIENT
  Age: 4 Year
  Sex: Female

DRUGS (11)
  1. HUMAN IMMUNOGLOBULIN [Suspect]
     Active Substance: HUMAN IMMUNOGLOBULIN G
     Indication: JUVENILE IDIOPATHIC ARTHRITIS
     Route: 042
  2. TRIAMCINOLONE [Suspect]
     Active Substance: TRIAMCINOLONE
     Indication: JUVENILE IDIOPATHIC ARTHRITIS
     Route: 050
  3. HYDROXYCHLOROQUINE [Suspect]
     Active Substance: HYDROXYCHLOROQUINE
     Indication: JUVENILE IDIOPATHIC ARTHRITIS
     Route: 048
  4. ORENCIA [Suspect]
     Active Substance: ABATACEPT
     Indication: JUVENILE IDIOPATHIC ARTHRITIS
     Route: 042
     Dates: start: 201007, end: 201009
  5. SULFASALAZINE. [Suspect]
     Active Substance: SULFASALAZINE
     Indication: JUVENILE IDIOPATHIC ARTHRITIS
     Route: 048
  6. METHOTREXATE. [Suspect]
     Active Substance: METHOTREXATE
     Indication: JUVENILE IDIOPATHIC ARTHRITIS
     Route: 058
  7. ACTEMRA [Suspect]
     Active Substance: TOCILIZUMAB
     Indication: JUVENILE IDIOPATHIC ARTHRITIS
     Route: 042
     Dates: start: 201110, end: 201203
  8. KINERET [Suspect]
     Active Substance: ANAKINRA
     Indication: JUVENILE IDIOPATHIC ARTHRITIS
     Route: 058
     Dates: start: 200808, end: 201010
  9. HUMIRA [Suspect]
     Active Substance: ADALIMUMAB
     Indication: JUVENILE IDIOPATHIC ARTHRITIS
     Route: 058
     Dates: start: 200804, end: 200806
  10. KINERET [Suspect]
     Active Substance: ANAKINRA
     Route: 058
     Dates: start: 200808, end: 201007
  11. PREDNISONE. [Concomitant]
     Active Substance: PREDNISONE
     Indication: JUVENILE IDIOPATHIC ARTHRITIS
     Route: 048
     Dates: start: 200510

REACTIONS (25)
  - Nausea [Unknown]
  - Drug ineffective [Unknown]
  - Mobility decreased [Unknown]
  - Adrenal insufficiency [Unknown]
  - Drug ineffective [Not Recovered/Not Resolved]
  - Juvenile idiopathic arthritis [Unknown]
  - Polyarthritis [Unknown]
  - Red blood cell sedimentation rate increased [Unknown]
  - Body height below normal [Unknown]
  - Arthritis [Unknown]
  - Vomiting [Unknown]
  - Joint injury [Unknown]
  - Obesity [Unknown]
  - Drug ineffective [Unknown]
  - Synovitis [Unknown]
  - Dizziness [Unknown]
  - Joint effusion [Unknown]
  - Juvenile idiopathic arthritis [Unknown]
  - Bone density decreased [Unknown]
  - Septic shock [Unknown]
  - Diarrhoea [Unknown]
  - Drug intolerance [Unknown]
  - C-reactive protein increased [Unknown]
  - Condition aggravated [Unknown]
  - Psoriasis [Unknown]

NARRATIVE: CASE EVENT DATE: 2008
